FAERS Safety Report 8237365-9 (Version None)
Quarter: 2012Q1

REPORT INFORMATION
  Report Type: 
  Country: None (occurrence: None)
  Receive Date: 20120323
  Receipt Date: 20120313
  Transmission Date: 20120608
  Serious: Yes (Death, Hospitalization)
  Sender: FDA-Public Use
  Company Number: 1226538

PATIENT
  Age: 75 Year
  Sex: Male
  Weight: 36.2878 kg

DRUGS (11)
  1. PREDNISOLONE [Concomitant]
  2. ACETAMINOPHEN [Concomitant]
  3. QUININE SULFATE [Concomitant]
  4. LANSOPRAZOLE [Concomitant]
  5. DICLOFENAC SODIUM [Concomitant]
  6. FLUTICASONE FUROATE [Concomitant]
  7. TRAMADOL [Concomitant]
  8. METHOTREXATE [Suspect]
     Indication: RHEUMATOID ARTHRITIS
     Dosage: 7.5 MG MILLIGRAM(S), SUBCUTANEOUS
     Route: 058
     Dates: start: 20111206, end: 20120227
  9. LEFLUNOMIDE [Suspect]
     Indication: RHEUMATOID ARTHRITIS
     Dosage: 10 MG MILLIGRAM(S), 1 DAY, ORAL
     Route: 048
     Dates: start: 20111206, end: 20120227
  10. SIMVASTATIN [Concomitant]
  11. FOLIC ACID [Concomitant]

REACTIONS (3)
  - PNEUMONIA [None]
  - GENERAL PHYSICAL HEALTH DETERIORATION [None]
  - PNEUMONITIS [None]
